FAERS Safety Report 10100954 (Version 2)
Quarter: 2014Q2

REPORT INFORMATION
  Report Type: Report from Study
  Country: AU (occurrence: AU)
  Receive Date: 20140424
  Receipt Date: 20140424
  Transmission Date: 20141212
  Serious: Yes (Hospitalization)
  Sender: FDA-Public Use
  Company Number: AU-ACCORD-023257

PATIENT
  Age: 61 Year
  Sex: Female

DRUGS (3)
  1. GEMCITABINE/GEMCITABINE HYDROCHLORIDE [Suspect]
     Indication: BREAST CANCER METASTATIC
     Dosage: 1G/M2, C5, D8 GT WEEKLY
  2. PACLITAXEL/PACLITAXEL LIPOSOME [Suspect]
     Indication: BREAST CANCER METASTATIC
     Dosage: PACLITAXEL 80MG/M2 D1, D8 Q21D;?15DAYS
  3. PREDNISOLONE [Suspect]
     Indication: BREAST CANCER METASTATIC
     Dosage: WITHIN 30 DAYS OF PJP

REACTIONS (1)
  - Pneumocystis jirovecii pneumonia [Recovering/Resolving]
